FAERS Safety Report 6838193-9 (Version None)
Quarter: 2010Q3

REPORT INFORMATION
  Report Type: 
  Country: None (occurrence: None)
  Receive Date: 20100713
  Receipt Date: 20070604
  Transmission Date: 20110219
  Serious: No
  Sender: FDA-Public Use
  Company Number: US-PFIZER INC-2007047375

PATIENT
  Sex: Female
  Weight: 68.9 kg

DRUGS (12)
  1. CHANTIX [Interacting]
     Indication: SMOKING CESSATION THERAPY
     Dates: start: 20061001
  2. CARAFATE [Suspect]
  3. DRUG, UNSPECIFIED [Interacting]
  4. GENERAL NUTRIENTS [Concomitant]
  5. MOBIC [Concomitant]
  6. NORVASC [Concomitant]
  7. TOPROL-XL [Concomitant]
  8. NEXIUM [Concomitant]
  9. ZOCOR [Concomitant]
  10. ACETYLSALICYLIC ACID [Concomitant]
  11. WELLBUTRIN [Concomitant]
  12. ALEVE (CAPLET) [Concomitant]

REACTIONS (4)
  - ABDOMINAL PAIN UPPER [None]
  - CONSTIPATION [None]
  - DRUG INTERACTION [None]
  - FLATULENCE [None]
